FAERS Safety Report 5902797-8 (Version None)
Quarter: 2008Q3

REPORT INFORMATION
  Report Type: 
  Country: None (occurrence: None)
  Receive Date: 20080929
  Receipt Date: 20080929
  Transmission Date: 20090109
  Serious: Yes (Other)
  Sender: FDA-Public Use
  Company Number: None

PATIENT
  Age: 36 Year
  Sex: Male
  Weight: 106.5953 kg

DRUGS (1)
  1. BUPROPION 150XL TEVA [Suspect]
     Indication: SOCIAL PHOBIA
     Dosage: 150XL 1/DAY PO
     Route: 048
     Dates: start: 20080901, end: 20080925

REACTIONS (3)
  - DRUG INEFFECTIVE [None]
  - HEADACHE [None]
  - THERAPEUTIC RESPONSE UNEXPECTED WITH DRUG SUBSTITUTION [None]
